FAERS Safety Report 4950259-7 (Version None)
Quarter: 2006Q1

REPORT INFORMATION
  Report Type: 
  Country: None (occurrence: None)
  Receive Date: 20060316
  Receipt Date: 20060303
  Transmission Date: 20060701
  Serious: Yes (Hospitalization)
  Sender: FDA-Public Use
  Company Number: 2006-BP-02444RO

PATIENT
  Age: 47 Year
  Sex: Female

DRUGS (5)
  1. AZATHIOPRINE [Suspect]
     Indication: WEGENER'S GRANULOMATOSIS
     Dosage: 100 MG
     Dates: start: 20030601
  2. RAMIPRIL [Concomitant]
  3. OMEPRAZOLE [Concomitant]
  4. SULFAMETHOXAZOLE/TRIMETHOPRIM  (BACTRIM /00086101/) [Concomitant]
  5. ZOPICLONE (ZOPICLONE) [Concomitant]

REACTIONS (12)
  - HAEMODIALYSIS [None]
  - HAEMOGLOBIN DECREASED [None]
  - HEART RATE INCREASED [None]
  - KIDNEY FIBROSIS [None]
  - NEPHRITIS INTERSTITIAL [None]
  - PLEURAL EFFUSION [None]
  - PYREXIA [None]
  - RENAL ABSCESS [None]
  - RENAL FAILURE ACUTE [None]
  - RENAL TUBULAR ATROPHY [None]
  - RESPIRATORY RATE INCREASED [None]
  - TUBULOINTERSTITIAL NEPHRITIS [None]
